FAERS Safety Report 20912646 (Version 1)
Quarter: 2022Q2

REPORT INFORMATION
  Report Type: Spontaneous
  Country: GB (occurrence: GB)
  Receive Date: 20220603
  Receipt Date: 20220603
  Transmission Date: 20220721
  Serious: Yes (Hospitalization, Other)
  Sender: FDA-Public Use
  Company Number: GB-LUPIN PHARMACEUTICALS INC.-2022-07951

PATIENT
  Age: 64 Year
  Sex: Male

DRUGS (2)
  1. CEFUROXIME AXETIL [Suspect]
     Active Substance: CEFUROXIME AXETIL
     Indication: Prophylaxis
     Dosage: 125 MILLIGRAM (125  MG IN 1 ML)
     Route: 057
  2. CEFUROXIME AXETIL [Suspect]
     Active Substance: CEFUROXIME AXETIL
     Indication: Endophthalmitis

REACTIONS (7)
  - Retinal toxicity [Unknown]
  - Retinal haemorrhage [Unknown]
  - Retinal exudates [Unknown]
  - Maculopathy [Unknown]
  - Retinopathy proliferative [Unknown]
  - Conjunctival haemorrhage [Unknown]
  - Vitreous haemorrhage [Recovered/Resolved]
